FAERS Safety Report 7054950-0 (Version None)
Quarter: 2010Q4

REPORT INFORMATION
  Report Type: 
  Country: None (occurrence: None)
  Receive Date: 20101021
  Receipt Date: 20101013
  Transmission Date: 20110411
  Serious: No
  Sender: FDA-Public Use
  Company Number: US-BIOGENIDEC-2010BI036195

PATIENT
  Age: 58 Year
  Sex: Female

DRUGS (4)
  1. TYSABRI [Suspect]
     Indication: MULTIPLE SCLEROSIS
     Route: 042
     Dates: start: 20070404
  2. AVONEX [Concomitant]
     Indication: MULTIPLE SCLEROSIS
     Route: 030
     Dates: start: 20000509
  3. AVONEX [Concomitant]
     Route: 030
     Dates: start: 20070901
  4. AVONEX [Concomitant]
     Route: 030
     Dates: start: 20100309

REACTIONS (1)
  - T-LYMPHOCYTE COUNT DECREASED [None]
